FAERS Safety Report 17564774 (Version 1)
Quarter: 2020Q1

REPORT INFORMATION
  Report Type: Spontaneous
  Country: US (occurrence: US)
  Receive Date: 20200320
  Receipt Date: 20200320
  Transmission Date: 20200409
  Serious: Yes (Hospitalization, Other)
  Sender: FDA-Public Use
  Company Number: US-SCIEGEN PHARMACEUTICALS INC-2020SCILIT00062

PATIENT
  Age: 70 Year
  Sex: Female

DRUGS (3)
  1. AZATHIOPRINE. [Interacting]
     Active Substance: AZATHIOPRINE
  2. ATORVASTATIN CALCIUM. [Suspect]
     Active Substance: ATORVASTATIN CALCIUM
  3. PREDNISONE. [Interacting]
     Active Substance: PREDNISONE

REACTIONS (4)
  - Overlap syndrome [Recovered/Resolved]
  - Primary biliary cholangitis [Recovered/Resolved]
  - Autoimmune hepatitis [Recovered/Resolved]
  - Drug-induced liver injury [Recovered/Resolved]
